FAERS Safety Report 10247560 (Version 2)
Quarter: 2014Q2

REPORT INFORMATION
  Report Type: Spontaneous
  Country: ES (occurrence: ES)
  Receive Date: 20140619
  Receipt Date: 20140623
  Transmission Date: 20141212
  Serious: Yes (Other)
  Sender: FDA-Public Use
  Company Number: ES-JNJFOC-20140609125

PATIENT
  Age: 50 Year
  Sex: Male

DRUGS (9)
  1. INTELENCE [Suspect]
     Indication: HIV INFECTION
     Route: 048
     Dates: start: 201402, end: 201406
  2. RALTEGRAVIR [Suspect]
     Indication: HIV INFECTION
     Route: 065
     Dates: start: 201402
  3. PROGRAF [Interacting]
     Indication: PROPHYLAXIS AGAINST TRANSPLANT REJECTION
     Route: 065
  4. DACORTIN [Concomitant]
     Indication: PROPHYLAXIS AGAINST TRANSPLANT REJECTION
     Route: 065
  5. MYFORTIC [Concomitant]
     Indication: PROPHYLAXIS AGAINST TRANSPLANT REJECTION
     Route: 065
  6. AMLODIPINE [Concomitant]
     Route: 065
  7. BISOPROLOL [Concomitant]
     Route: 065
  8. RANITIDINE [Concomitant]
     Route: 065
  9. SEPTRIN [Concomitant]
     Route: 065

REACTIONS (2)
  - Transplant rejection [Recovered/Resolved]
  - Drug interaction [Recovered/Resolved]
